FAERS Safety Report 14667051 (Version 1)
Quarter: 2018Q1

REPORT INFORMATION
  Report Type: Spontaneous
  Country: FR (occurrence: FR)
  Receive Date: 20180322
  Receipt Date: 20180322
  Transmission Date: 20180509
  Serious: Yes (Other)
  Sender: FDA-Public Use
  Company Number: FR-MERCK KGAA-2044267

PATIENT
  Age: 58 Year
  Sex: Female
  Weight: 56 kg

DRUGS (1)
  1. NOVOTHYROX [Suspect]
     Active Substance: LEVOTHYROXINE SODIUM
     Indication: POST PROCEDURAL HYPOTHYROIDISM
     Dates: start: 201705, end: 2017

REACTIONS (20)
  - Arrhythmia [None]
  - Loss of personal independence in daily activities [Not Recovered/Not Resolved]
  - Depression [None]
  - Malaise [None]
  - Muscle spasms [Recovered/Resolved]
  - Vomiting [Recovered/Resolved]
  - Insomnia [None]
  - Hot flush [None]
  - Anger [None]
  - Lymphocyte count increased [None]
  - Diarrhoea [None]
  - Tachycardia [None]
  - Thinking abnormal [Recovered/Resolved]
  - Neutrophil count increased [None]
  - Headache [None]
  - Anxiety [None]
  - Fatigue [None]
  - Feeling abnormal [Recovered/Resolved]
  - Personal relationship issue [None]
  - Haematocrit decreased [None]

NARRATIVE: CASE EVENT DATE: 2017
